FAERS Safety Report 7844585-1 (Version None)
Quarter: 2011Q4

REPORT INFORMATION
  Report Type: 
  Country: None (occurrence: None)
  Receive Date: 20111025
  Receipt Date: 20111013
  Transmission Date: 20120403
  Serious: Yes (Hospitalization)
  Sender: FDA-Public Use
  Company Number: BE-JNJFOC-20111009776

PATIENT
  Sex: Female
  Weight: 65.7 kg

DRUGS (6)
  1. OMEPRAZOLE [Concomitant]
     Route: 065
     Dates: start: 20080926
  2. CLONAZEPAM [Concomitant]
     Route: 065
     Dates: start: 20110907
  3. INDAPAMIDE [Concomitant]
     Route: 065
     Dates: start: 20100508
  4. TOVIAZ [Concomitant]
     Route: 065
     Dates: start: 20091016
  5. TAPENTADOL HYDROCHLORIDE [Suspect]
     Indication: BACK PAIN
     Route: 065
     Dates: start: 20110725, end: 20111010
  6. IBUPROFEN [Concomitant]
     Route: 065

REACTIONS (6)
  - ABDOMINAL PAIN UPPER [None]
  - WEIGHT DECREASED [None]
  - SOMNOLENCE [None]
  - DECREASED APPETITE [None]
  - ANXIETY [None]
  - CONDITION AGGRAVATED [None]
